FAERS Safety Report 13187640 (Version 1)
Quarter: 2017Q1

REPORT INFORMATION
  Report Type: Spontaneous
  Country: US (occurrence: US)
  Receive Date: 20170206
  Receipt Date: 20170206
  Transmission Date: 20170428
  Serious: No
  Sender: FDA-Public Use
  Company Number: US-BAYER-2017-022367

PATIENT
  Age: 79 Year
  Sex: Male
  Weight: 91 kg

DRUGS (4)
  1. ASPIRIN BP [Concomitant]
  2. CHOLESTEROL [Concomitant]
     Active Substance: CHOLESTEROL
  3. BISODOL HEARTBURN [Concomitant]
  4. ALEVE [Suspect]
     Active Substance: NAPROXEN SODIUM
     Indication: PAIN
     Route: 048
     Dates: end: 20170203

REACTIONS (1)
  - Product use issue [Unknown]
